FAERS Safety Report 8462441-5 (Version None)
Quarter: 2012Q2

REPORT INFORMATION
  Report Type: 
  Country: None (occurrence: None)
  Receive Date: 20120625
  Receipt Date: 20120619
  Transmission Date: 20120825
  Serious: No
  Sender: FDA-Public Use
  Company Number: US-PFIZER INC-2012148250

PATIENT
  Sex: Male
  Weight: 77.098 kg

DRUGS (1)
  1. ADVIL CONGESTION RELIEF [Suspect]
     Indication: SINUS DISORDER
     Dosage: UNK, THREE TIMES A DAY
     Route: 048
     Dates: start: 20120101, end: 20120618

REACTIONS (1)
  - DRUG INEFFECTIVE [None]
